FAERS Safety Report 5391434-X (Version None)
Quarter: 2007Q3

REPORT INFORMATION
  Report Type: 
  Country: None (occurrence: None)
  Receive Date: 20070719
  Receipt Date: 20070719
  Transmission Date: 20080115
  Serious: Yes (Other)
  Sender: FDA-Public Use
  Company Number: A0664710A

PATIENT
  Age: 53 Year
  Sex: Female

DRUGS (3)
  1. ALLI [Suspect]
     Route: 048
     Dates: start: 20070618
  2. MELOXICAM [Suspect]
  3. HYZAAR [Concomitant]

REACTIONS (4)
  - COAGULOPATHY [None]
  - DRUG INTERACTION [None]
  - EPISTAXIS [None]
  - JOINT EFFUSION [None]
